FAERS Safety Report 15705701 (Version 1)
Quarter: 2018Q4

REPORT INFORMATION
  Report Type: Report from Study
  Country: FR (occurrence: FR)
  Receive Date: 20181210
  Receipt Date: 20181210
  Transmission Date: 20190205
  Serious: Yes (Hospitalization, Other)
  Sender: FDA-Public Use
  Company Number: FR-PFIZER INC-2018499334

PATIENT
  Age: 70 Year
  Sex: Male

DRUGS (7)
  1. GEMCITABINE HYDROCHLORIDE. [Suspect]
     Active Substance: GEMCITABINE HYDROCHLORIDE
     Indication: BLADDER TRANSITIONAL CELL CARCINOMA
     Dosage: 1670 MG, 1X/DAY
     Dates: start: 20181030, end: 20181030
  2. GEMCITABINE HYDROCHLORIDE. [Suspect]
     Active Substance: GEMCITABINE HYDROCHLORIDE
     Dosage: 1670 MG, 1X/DAY
     Dates: start: 20181106, end: 20181106
  3. PARACETAMOL [Concomitant]
     Active Substance: ACETAMINOPHEN
     Indication: PAIN
     Dosage: 1 G, IF PAIN
  4. CISPLATIN. [Suspect]
     Active Substance: CISPLATIN
     Indication: BLADDER TRANSITIONAL CELL CARCINOMA
     Dosage: 117 MG, 1X/DAY
     Dates: start: 20181030, end: 20181030
  5. AVELUMAB [Suspect]
     Active Substance: AVELUMAB
     Indication: BLADDER TRANSITIONAL CELL CARCINOMA
     Dosage: 640 MG, 1X/DAY
     Dates: start: 20181030, end: 20181030
  6. MACROGOL [Concomitant]
     Active Substance: POLYETHYLENE GLYCOLS
     Indication: CONSTIPATION
     Dosage: 1 DF, IF CONSTIPATION
  7. SKENAN [Concomitant]
     Active Substance: MORPHINE SULFATE
     Dosage: 10 MG, 2X/DAY (1DF IN THE MORNING AND 1 DF IN THE EVENING)
     Dates: start: 20181030

REACTIONS (3)
  - Erysipelas [Recovering/Resolving]
  - Blood creatinine increased [Not Recovered/Not Resolved]
  - Renal failure [Recovered/Resolved]

NARRATIVE: CASE EVENT DATE: 20181117
